FAERS Safety Report 5930669-1 (Version None)
Quarter: 2008Q4

REPORT INFORMATION
  Report Type: 
  Country: None (occurrence: None)
  Receive Date: 20081007
  Receipt Date: 20040609
  Transmission Date: 20090506
  Serious: Yes (Other)
  Sender: FDA-Public Use
  Company Number: 20040032USST

PATIENT
  Sex: Female
  Weight: 48 kg

DRUGS (2)
  1. CARNITOR [Suspect]
     Indication: CARNITINE DEFICIENCY
     Dosage: 1GM, TIW, INTRAVENOUS
     Route: 042
     Dates: start: 20031118, end: 20040101
  2. CARNITOR [Suspect]
     Indication: DIALYSIS
     Dosage: 1GM, TIW, INTRAVENOUS
     Route: 042
     Dates: start: 20031118, end: 20040101

REACTIONS (1)
  - CONVULSION [None]
